FAERS Safety Report 6224538-X (Version None)
Quarter: 2009Q2

REPORT INFORMATION
  Report Type: 
  Country: None (occurrence: None)
  Receive Date: 20090612
  Receipt Date: 20090320
  Transmission Date: 20091009
  Serious: No
  Sender: FDA-Public Use
  Company Number: US-ABBOTT-09P-163-0563934-00

PATIENT
  Sex: Female
  Weight: 122.58 kg

DRUGS (1)
  1. HUMIRA [Suspect]
     Indication: RHEUMATOID ARTHRITIS
     Dates: start: 20090210, end: 20090320

REACTIONS (3)
  - FATIGUE [None]
  - MALAISE [None]
  - URINARY TRACT INFECTION [None]
